FAERS Safety Report 26119528 (Version 1)
Quarter: 2025Q4

REPORT INFORMATION
  Report Type: Spontaneous
  Country: EU (occurrence: EU)
  Receive Date: 20251204
  Receipt Date: 20251204
  Transmission Date: 20260117
  Serious: Yes (Hospitalization, Other)
  Sender: ASTELLAS
  Company Number: EU-ASTELLAS-2025-AER-065445

PATIENT
  Age: 53 Year
  Sex: Male

DRUGS (8)
  1. GILTERITINIB [Suspect]
     Active Substance: GILTERITINIB
     Indication: Acute myeloid leukaemia
     Route: 050
  2. GILTERITINIB [Suspect]
     Active Substance: GILTERITINIB
     Indication: FLT3 gene mutation
     Route: 050
  3. GILTERITINIB [Suspect]
     Active Substance: GILTERITINIB
     Dosage: DOSE REDUCTION
     Route: 050
  4. TACROLIMUS [Concomitant]
     Active Substance: TACROLIMUS
     Indication: Product used for unknown indication
     Route: 065
  5. Flu/Mel140 [Concomitant]
     Indication: Product used for unknown indication
     Route: 065
  6. THIOTEPA [Concomitant]
     Active Substance: THIOTEPA
     Indication: Product used for unknown indication
     Route: 065
  7. PTCy [Concomitant]
     Indication: Product used for unknown indication
     Route: 065
  8. MYCOPHENOLATE MOFETIL [Concomitant]
     Active Substance: MYCOPHENOLATE MOFETIL
     Indication: Product used for unknown indication
     Route: 065

REACTIONS (12)
  - Pneumonia [Unknown]
  - Hypogammaglobulinaemia [Unknown]
  - Penile dysplasia [Unknown]
  - Bronchopulmonary aspergillosis [Unknown]
  - Graft versus host disease in skin [Unknown]
  - Cytopenia [Unknown]
  - Chronic graft versus host disease in liver [Unknown]
  - Obliterative bronchiolitis [Unknown]
  - Haematotoxicity [Unknown]
  - Hepatotoxicity [Unknown]
  - Hypertransaminasaemia [Unknown]
  - Dry eye [Unknown]
